FAERS Safety Report 4489925-9 (Version None)
Quarter: 2004Q4

REPORT INFORMATION
  Report Type: 
  Country: None (occurrence: None)
  Receive Date: 20041101
  Receipt Date: 20030916
  Transmission Date: 20050328
  Serious: Yes (Life-Threatening, Hospitalization)
  Sender: FDA-Public Use
  Company Number: US-GLAXOSMITHKLINE-A0426001A

PATIENT
  Age: 70 Year
  Sex: Male
  Weight: 88.1 kg

DRUGS (4)
  1. LAMICTAL [Suspect]
     Indication: DIABETIC NEUROPATHY
     Dosage: 200MG TWICE PER DAY
     Route: 048
     Dates: start: 20030811, end: 20030828
  2. COUMADIN [Concomitant]
     Route: 048
  3. MONOPRIL [Concomitant]
     Route: 048
  4. GLUCOVANCE [Concomitant]
     Route: 048

REACTIONS (5)
  - ATRIAL FIBRILLATION [None]
  - CHEST WALL PAIN [None]
  - RIB FRACTURE [None]
  - SINUS BRADYCARDIA [None]
  - SYNCOPE [None]
